FAERS Safety Report 9750150 (Version 2)
Quarter: 2013Q4

REPORT INFORMATION
  Report Type: Spontaneous
  Country: US (occurrence: US)
  Receive Date: 20131212
  Receipt Date: 20131212
  Transmission Date: 20140711
  Serious: No
  Sender: FDA-Public Use
  Company Number: US-GILEAD-US-CVT-100052

PATIENT
  Sex: Male

DRUGS (16)
  1. RANEXA [Suspect]
     Indication: ANGINA PECTORIS
  2. MEXILETINE [Concomitant]
  3. CARVEDILOL [Concomitant]
  4. COUMADIN [Concomitant]
  5. ALDACTONE                          /00006201/ [Concomitant]
  6. FUROSEMIDE                         /00032601/ [Concomitant]
  7. LANOXIN [Concomitant]
  8. ASA [Concomitant]
  9. CRESTOR                            /01588601/ [Concomitant]
  10. NITROGLYCERIN [Concomitant]
     Route: 060
  11. PROSCAR [Concomitant]
  12. CARDURA /00639302/ [Concomitant]
  13. LOVAZA [Concomitant]
  14. KCL [Concomitant]
  15. MAG-OX [Concomitant]
  16. SAW PALMETTO [Concomitant]

REACTIONS (1)
  - Chromaturia [Unknown]
